FAERS Safety Report 9323965 (Version 1)
Quarter: 2013Q2

REPORT INFORMATION
  Report Type: Spontaneous
  Country: US (occurrence: US)
  Receive Date: 20130603
  Receipt Date: 20130603
  Transmission Date: 20140414
  Serious: Yes (Other)
  Sender: FDA-Public Use
  Company Number: US-PFIZER INC-2013164368

PATIENT
  Age: 55 Year
  Sex: Female
  Weight: 99.77 kg

DRUGS (7)
  1. SUTENT [Suspect]
     Indication: RENAL CELL CARCINOMA STAGE IV
     Dosage: 25 MG, 1X/DAY
     Dates: start: 201301
  2. SUTENT [Suspect]
     Dosage: 50 MG, 1X/DAY
     Dates: start: 201304
  3. SUTENT [Suspect]
     Dosage: 37MG (25MG + 12MG), 1X/DAY
  4. DYAZIDE [Suspect]
     Indication: HYPERTENSION
     Dosage: HYDROCHLOROTHIAZIDE 25/ TRIAMTERENE 37.5 MG, 1X/DAY
  5. HUMULIN [Suspect]
     Indication: DIABETES MELLITUS
     Dosage: UNK
  6. LANTUS [Suspect]
     Indication: DIABETES MELLITUS
     Dosage: 27 IU, 1X/DAY
  7. LANTUS [Suspect]
     Dosage: 6 IU, 1X/DAY

REACTIONS (16)
  - Aphagia [Unknown]
  - Rash [Unknown]
  - Ageusia [Unknown]
  - Asthenia [Unknown]
  - Blood glucose decreased [Unknown]
  - Blood glucose increased [Unknown]
  - Constipation [Unknown]
  - Diarrhoea [Unknown]
  - Fatigue [Unknown]
  - Flatulence [Unknown]
  - Hyperhidrosis [Unknown]
  - Hypertension [Unknown]
  - Nausea [Unknown]
  - Oropharyngeal pain [Unknown]
  - Pyrexia [Unknown]
  - Pallor [Unknown]
